FAERS Safety Report 7488070-8 (Version None)
Quarter: 2011Q2

REPORT INFORMATION
  Report Type: 
  Country: None (occurrence: None)
  Receive Date: 20110511
  Receipt Date: 20110418
  Transmission Date: 20111010
  Serious: Yes (Other)
  Sender: FDA-Public Use
  Company Number: FK201100795

PATIENT
  Age: 47 Year
  Sex: Male

DRUGS (2)
  1. SODIUM CHLORIDE 0.9% [Concomitant]
  2. AMIODARONE HYDROCHLORIDE [Suspect]
     Indication: CARDIOVERSION
     Dosage: SEE IMAGE
     Route: 042

REACTIONS (2)
  - BACK PAIN [None]
  - FLUSHING [None]
